FAERS Safety Report 7620242-1 (Version None)
Quarter: 2011Q3

REPORT INFORMATION
  Report Type: 
  Country: None (occurrence: None)
  Receive Date: 20110719
  Receipt Date: 20110712
  Transmission Date: 20111222
  Serious: Yes (Death)
  Sender: FDA-Public Use
  Company Number: US-PURDUE-USA-2011-0071869

PATIENT
  Age: 10 Month
  Sex: Male

DRUGS (2)
  1. MORPHINE SULFATE [Suspect]
     Indication: ACCIDENTAL EXPOSURE
  2. OXYCODONE HCL [Suspect]
     Indication: ACCIDENTAL EXPOSURE

REACTIONS (3)
  - ACCIDENTAL EXPOSURE [None]
  - VICTIM OF HOMICIDE [None]
  - VOMITING [None]
